FAERS Safety Report 6475126-1 (Version None)
Quarter: 2009Q4

REPORT INFORMATION
  Report Type: 
  Country: None (occurrence: None)
  Receive Date: 20091204
  Receipt Date: 20090512
  Transmission Date: 20100525
  Serious: Yes (Hospitalization)
  Sender: FDA-Public Use
  Company Number: US-ELI_LILLY_AND_COMPANY-US200903003511

PATIENT
  Age: 42 Year
  Sex: Male

DRUGS (2)
  1. CYMBALTA [Suspect]
     Indication: NEURALGIA
     Dosage: 30 MG, UNK
     Route: 048
     Dates: start: 20090301, end: 20090301
  2. ETHANOL [Concomitant]

REACTIONS (8)
  - AGGRESSION [None]
  - BLOOD PRESSURE INCREASED [None]
  - DYSPNOEA [None]
  - EYE DISORDER [None]
  - INCOHERENT [None]
  - MALAISE [None]
  - SOMNOLENCE [None]
  - SPEECH DISORDER [None]
